FAERS Safety Report 4433288-1 (Version None)
Quarter: 2004Q3

REPORT INFORMATION
  Report Type: 
  Country: None (occurrence: None)
  Receive Date: 20040824
  Receipt Date: 20040727
  Transmission Date: 20050211
  Serious: Yes (Death)
  Sender: FDA-Public Use
  Company Number: USA-2004-0016070

PATIENT
  Age: 55 Year
  Sex: Male
  Weight: 78 kg

DRUGS (6)
  1. MORPHINE SULFATE [Suspect]
     Dosage: MG
  2. DIAZEPAM [Suspect]
  3. OXAZEPAM [Suspect]
  4. TEMAZEPAM [Suspect]
  5. CAFFEINE (CAFFEINE) [Suspect]
  6. NICOTINE [Suspect]

REACTIONS (4)
  - ACCIDENTAL OVERDOSE [None]
  - ALCOHOL USE [None]
  - ARTERIOSCLEROSIS [None]
  - PULMONARY OEDEMA [None]
